FAERS Safety Report 7574326-7 (Version None)
Quarter: 2011Q2

REPORT INFORMATION
  Report Type: 
  Country: None (occurrence: None)
  Receive Date: 20110627
  Receipt Date: 20110623
  Transmission Date: 20111010
  Serious: Yes (Hospitalization)
  Sender: FDA-Public Use
  Company Number: IT-MERCK-1106ITA00033

PATIENT
  Age: 74 Year
  Sex: Male

DRUGS (3)
  1. ATORVASTATIN CALCIUM [Concomitant]
     Route: 048
  2. AMLODIPINE BESYLATE [Concomitant]
     Route: 048
  3. HYZAAR [Suspect]
     Route: 048
     Dates: start: 20070101

REACTIONS (1)
  - TACHYCARDIA PAROXYSMAL [None]
